FAERS Safety Report 4549454-0 (Version None)
Quarter: 2005Q1

REPORT INFORMATION
  Report Type: 
  Country: None (occurrence: None)
  Receive Date: 20050111
  Receipt Date: 20041109
  Transmission Date: 20050727
  Serious: Yes (Other)
  Sender: FDA-Public Use
  Company Number: US-AMGEN-US098738

PATIENT
  Sex: Female

DRUGS (8)
  1. ENBREL [Suspect]
     Indication: RHEUMATOID ARTHRITIS
     Route: 058
     Dates: start: 19990729
  2. METHOTREXATE [Concomitant]
     Dates: start: 19931119
  3. ZYRTEC [Concomitant]
  4. BENADRYL [Concomitant]
  5. ALLEGRA [Concomitant]
  6. HYDROCHLOROTHIAZIDE [Concomitant]
  7. LORAZEPAM [Concomitant]
  8. FLEXERIL [Concomitant]

REACTIONS (1)
  - SCLERITIS [None]
